FAERS Safety Report 10172192 (Version 3)
Quarter: 2014Q2

REPORT INFORMATION
  Report Type: Spontaneous
  Country: JP (occurrence: JP)
  Receive Date: 20140515
  Receipt Date: 20140526
  Transmission Date: 20141212
  Serious: Yes (Death, Hospitalization, Other)
  Sender: FDA-Public Use
  Company Number: PHHY2014JP053978

PATIENT
  Age: 88 Year
  Sex: Male

DRUGS (3)
  1. NEORAL [Suspect]
     Indication: INTERSTITIAL LUNG DISEASE
     Dosage: 50 MG, QD
     Route: 048
     Dates: end: 20140502
  2. NEORAL [Suspect]
     Indication: OFF LABEL USE
  3. DIOVAN [Concomitant]
     Dosage: UNK
     Route: 048

REACTIONS (4)
  - Acute respiratory distress syndrome [Fatal]
  - Pneumonia [Fatal]
  - Blood creatinine increased [Not Recovered/Not Resolved]
  - General physical health deterioration [Unknown]
